FAERS Safety Report 14764049 (Version 1)
Quarter: 2018Q2

REPORT INFORMATION
  Report Type: Report from Study
  Country: SG (occurrence: SG)
  Receive Date: 20180416
  Receipt Date: 20180416
  Transmission Date: 20180711
  Serious: Yes (Death)
  Sender: FDA-Public Use
  Company Number: SG-TAIHO ONCOLOGY INC-CN-2018-00018

PATIENT
  Age: 41 Year
  Sex: Female

DRUGS (1)
  1. LONSURF [Suspect]
     Active Substance: TIPIRACIL HYDROCHLORIDE\TRIFLURIDINE
     Indication: COLORECTAL CANCER METASTATIC
     Dosage: CYCLE 1-CYCLE # UNKNOWN
     Route: 048
     Dates: start: 20160425, end: 201608

REACTIONS (2)
  - Decreased appetite [Unknown]
  - Death [Fatal]
